FAERS Safety Report 4474267-8 (Version None)
Quarter: 2004Q4

REPORT INFORMATION
  Report Type: 
  Country: None (occurrence: None)
  Receive Date: 20041013
  Receipt Date: 20041013
  Transmission Date: 20050328
  Serious: Yes (Hospitalization)
  Sender: FDA-Public Use
  Company Number: None

PATIENT
  Age: 9 Year
  Sex: Male
  Weight: 24 kg

DRUGS (4)
  1. AMLODIPINE [Suspect]
     Indication: BONE MARROW TRANSPLANT
     Dosage: 4 MG QD PO
     Route: 048
     Dates: start: 20040904, end: 20040921
  2. AMLODIPINE [Suspect]
     Indication: MYELOFIBROSIS
     Dosage: 4 MG QD PO
     Route: 048
     Dates: start: 20040904, end: 20040921
  3. CYCLOSPORINE [Suspect]
     Dosage: 65 MG BID IV
     Route: 042
     Dates: start: 20040904, end: 20040918
  4. NIFEDIPINE [Concomitant]

REACTIONS (1)
  - TOXIC EPIDERMAL NECROLYSIS [None]
